FAERS Safety Report 24684822 (Version 1)
Quarter: 2024Q4

REPORT INFORMATION
  Report Type: Spontaneous
  Country: FR (occurrence: FR)
  Receive Date: 20241202
  Receipt Date: 20241202
  Transmission Date: 20250115
  Serious: Yes (Life-Threatening)
  Sender: AMGEN
  Company Number: FR-AMGEN-FRASP2024233830

PATIENT
  Age: 10 Year
  Sex: Female
  Weight: 17 kg

DRUGS (1)
  1. XGEVA [Suspect]
     Active Substance: DENOSUMAB
     Indication: Aneurysmal bone cyst
     Dosage: 70 MILLIGRAM/SQ. METER, CYCLICAL
     Route: 058
     Dates: start: 20221014, end: 20240417

REACTIONS (1)
  - Hypercalcaemia [Recovering/Resolving]

NARRATIVE: CASE EVENT DATE: 20240912
